FAERS Safety Report 19464615 (Version 2)
Quarter: 2021Q2

REPORT INFORMATION
  Report Type: Report from Study
  Country: PK (occurrence: PK)
  Receive Date: 20210626
  Receipt Date: 20210626
  Transmission Date: 20210717
  Serious: Yes (Death)
  Sender: FDA-Public Use
  Company Number: NVSC2021PK142533

PATIENT
  Age: 70 Year
  Sex: Female

DRUGS (1)
  1. ACLASTA [Suspect]
     Active Substance: ZOLEDRONIC ACID
     Indication: OSTEOPOROSIS
     Dosage: 5 MG/100ML, Q12MO
     Route: 042
     Dates: start: 20181204, end: 20181204

REACTIONS (1)
  - Death [Fatal]

NARRATIVE: CASE EVENT DATE: 20190611
